FAERS Safety Report 8907290 (Version 1)
Quarter: 2012Q4

REPORT INFORMATION
  Report Type: 
  Country: GB (occurrence: GB)
  Receive Date: 20121114
  Receipt Date: 20121114
  Transmission Date: 20130627
  Serious: Yes (Other)
  Sender: FDA-Public Use
  Company Number: GB-ABBOTT-12P-167-1005659-00

PATIENT
  Sex: Male
  Weight: 56.3 kg

DRUGS (2)
  1. CREON [Suspect]
     Indication: PANCREATITIS CHRONIC
     Dosage: 10000 (1 for snacks),25000(1 for breakfast),40000 (1 for meals) units
  2. CREON [Suspect]
     Dosage: 2 x 10000 capsules for snacks and 50000 units with main meals

REACTIONS (2)
  - Diabetes mellitus [Unknown]
  - Weight gain poor [Unknown]
